FAERS Safety Report 26093852 (Version 1)
Quarter: 2025Q4

REPORT INFORMATION
  Report Type: Spontaneous
  Country: US (occurrence: None)
  Receive Date: 20251126
  Receipt Date: 20251126
  Transmission Date: 20260118
  Serious: Yes (Hospitalization)
  Sender: FDA-CTU
  Company Number: None

PATIENT
  Age: 43 Year
  Sex: Male

DRUGS (1)
  1. LOKELMA [Suspect]
     Active Substance: SODIUM ZIRCONIUM CYCLOSILICATE
     Indication: Hyperkalaemia
     Dosage: OTHER FREQUENCY : DAILY ON NON-DIALYISIS DAYS;?
     Route: 048
     Dates: start: 202511

REACTIONS (2)
  - Hypertension [None]
  - Pulmonary oedema [None]

NARRATIVE: CASE EVENT DATE: 20251123
